FAERS Safety Report 15019494 (Version 6)
Quarter: 2018Q4

REPORT INFORMATION
  Report Type: Spontaneous
  Country: US (occurrence: US)
  Receive Date: 20180617
  Receipt Date: 20181023
  Transmission Date: 20190204
  Serious: Yes (Hospitalization, Other)
  Sender: FDA-Public Use
  Company Number: US-ASTRAZENECA-2018SE75218

PATIENT
  Age: 28888 Day
  Sex: Male
  Weight: 65.3 kg

DRUGS (21)
  1. FASENRA [Suspect]
     Active Substance: BENRALIZUMAB
     Indication: ASTHMA
     Dosage: 2.0DF UNKNOWN
     Route: 058
     Dates: start: 20180427
  2. SYMBICORT [Suspect]
     Active Substance: BUDESONIDE\FORMOTEROL FUMARATE DIHYDRATE
     Indication: ASTHMA
     Dosage: 160/4.5 MCG 2 PUFFS TWICE PER DAY
     Route: 055
  3. ROBITUSSIN-AC [Concomitant]
     Indication: COUGH
     Dosage: AS REQUIRED
     Route: 045
  4. PANTOPRAZOLE [Concomitant]
     Active Substance: PANTOPRAZOLE
  5. PREDNISONE. [Concomitant]
     Active Substance: PREDNISONE
  6. DOCUSATE [Concomitant]
     Active Substance: DOCUSATE
     Dosage: DAILY
  7. FLUTICASONE. [Concomitant]
     Active Substance: FLUTICASONE
     Route: 045
  8. TRAZODONE [Concomitant]
     Active Substance: TRAZODONE HYDROCHLORIDE
  9. ELIQUIS [Concomitant]
     Active Substance: APIXABAN
     Indication: ATRIAL FIBRILLATION
  10. SENNA [Concomitant]
     Active Substance: SENNA LEAF\SENNOSIDES\SENNOSIDES A AND B
     Dosage: DAILY
  11. MONTELUKAST [Concomitant]
     Active Substance: MONTELUKAST SODIUM
     Dosage: DAILY
  12. METOPROLOL TARTRATE. [Concomitant]
     Active Substance: METOPROLOL TARTRATE
     Dosage: 12.5 TWO TIMES A DAY
  13. FLOMAX [Concomitant]
     Active Substance: TAMSULOSIN HYDROCHLORIDE
     Dosage: 0.4 DAILY
  14. FASENRA [Suspect]
     Active Substance: BENRALIZUMAB
     Indication: ASTHMA
     Dosage: 30.0MG UNKNOWN
     Route: 058
     Dates: start: 20180529, end: 20180628
  15. LATANOPROST. [Concomitant]
     Active Substance: LATANOPROST
     Dosage: AS REQUIRED
     Route: 047
  16. AZITHROMYCIN ANHYDROUS. [Concomitant]
     Active Substance: AZITHROMYCIN ANHYDROUS
     Dosage: 500.0MG UNKNOWN
     Route: 048
  17. FLONASE [Concomitant]
     Active Substance: FLUTICASONE PROPIONATE
  18. TYLENOL [Concomitant]
     Active Substance: ACETAMINOPHEN
     Dosage: AS REQUIRED
  19. FINASTERIDE. [Concomitant]
     Active Substance: FINASTERIDE
     Dosage: 5, DAILY
  20. NORCO [Concomitant]
     Active Substance: ACETAMINOPHEN\HYDROCODONE BITARTRATE
     Dosage: AS REQUIRED
     Route: 045
  21. DUONEB [Concomitant]
     Active Substance: ALBUTEROL SULFATE\IPRATROPIUM BROMIDE
     Dosage: EVERY 6 HOURS, AS REQUIRED

REACTIONS (17)
  - Insomnia [Not Recovered/Not Resolved]
  - Dysphonia [Not Recovered/Not Resolved]
  - Respiratory disorder [Unknown]
  - Bacterial infection [Not Recovered/Not Resolved]
  - Rhinorrhoea [Unknown]
  - Hypersensitivity vasculitis [Recovering/Resolving]
  - Pneumothorax [Unknown]
  - Nasal congestion [Recovering/Resolving]
  - Pruritus generalised [Unknown]
  - Vision blurred [Unknown]
  - Eosinophilic granulomatosis with polyangiitis [Recovering/Resolving]
  - Atrial fibrillation [Unknown]
  - Syncope [Unknown]
  - Secretion discharge [Unknown]
  - Product dose omission [Not Recovered/Not Resolved]
  - Radial nerve palsy [Unknown]
  - Dyspnoea [Unknown]

NARRATIVE: CASE EVENT DATE: 20180621
